FAERS Safety Report 6960333-1 (Version None)
Quarter: 2010Q3

REPORT INFORMATION
  Report Type: 
  Country: None (occurrence: None)
  Receive Date: 20100901
  Receipt Date: 20100823
  Transmission Date: 20110219
  Serious: Yes (Hospitalization)
  Sender: FDA-Public Use
  Company Number: FR-ASTRAZENECA-2010SE25885

PATIENT
  Age: 22325 Day
  Sex: Male

DRUGS (14)
  1. NEXIUM [Suspect]
     Indication: ABDOMINAL PAIN UPPER
     Route: 048
     Dates: end: 20100218
  2. CELLCEPT [Suspect]
     Indication: RENAL TRANSPLANT
     Route: 048
     Dates: start: 19910101
  3. PROGRAF [Suspect]
     Indication: RENAL TRANSPLANT
     Route: 065
  4. PROGRAF [Suspect]
     Route: 065
     Dates: start: 20100217
  5. DIFFU K [Suspect]
     Dosage: 7.2 G, 4 CAPSULES,THREE TIMES A DAY.
     Route: 048
  6. DIFFU K [Suspect]
     Route: 048
  7. CORTANCYL [Concomitant]
  8. ZYLORIC [Concomitant]
  9. BISOPROLOL FUMARATE [Concomitant]
  10. ASPEGIC 1000 [Concomitant]
  11. ATARAX [Concomitant]
  12. LASIX [Concomitant]
  13. ACTAPRID PROTOCOL [Concomitant]
  14. BRICANYL [Concomitant]

REACTIONS (7)
  - ATRIOVENTRICULAR BLOCK FIRST DEGREE [None]
  - CARDIAC FAILURE [None]
  - HYPERKALAEMIA [None]
  - OVERDOSE [None]
  - RENAL FAILURE ACUTE [None]
  - THROMBOCYTOPENIA [None]
  - TREATMENT NONCOMPLIANCE [None]
